FAERS Safety Report 11242699 (Version 3)
Quarter: 2015Q3

REPORT INFORMATION
  Report Type: Spontaneous
  Country: DE (occurrence: DE)
  Receive Date: 20150707
  Receipt Date: 20150714
  Transmission Date: 20151125
  Serious: Yes (Hospitalization, Other)
  Sender: FDA-Public Use
  Company Number: PHHY2015DE080490

PATIENT
  Age: 74 Year
  Sex: Female

DRUGS (14)
  1. CERTICAN [Suspect]
     Active Substance: EVEROLIMUS
     Dosage: 4.25 MG, QD (.25 MG IN THE MORNING AND 2.0 MG IN THE EVENING)
     Route: 048
  2. LOSARTAN. [Concomitant]
     Active Substance: LOSARTAN
     Indication: PRODUCT USED FOR UNKNOWN INDICATION
     Dosage: UNK
     Route: 065
  3. CERTICAN [Suspect]
     Active Substance: EVEROLIMUS
     Indication: HEART TRANSPLANT
     Dosage: 2.25-2.5 MG, BID (0.5, 0.75 AND 1.0 TABLETS)
     Route: 048
  4. CERTICAN [Suspect]
     Active Substance: EVEROLIMUS
     Dosage: 0.75 DF, UNK
     Route: 048
     Dates: start: 2011
  5. CERTICAN [Suspect]
     Active Substance: EVEROLIMUS
     Dosage: 1.0 DF, UNK
     Route: 048
     Dates: start: 2011
  6. METAMIZOLE [Concomitant]
     Active Substance: METAMIZOLE
     Indication: PRODUCT USED FOR UNKNOWN INDICATION
     Dosage: UNK, PRN
     Route: 065
  7. CERTICAN [Suspect]
     Active Substance: EVEROLIMUS
     Dosage: 1.25-2.5 MG, BID (0.5, 0.75 AND 1.0 TABLETS)
     Route: 048
     Dates: start: 2011
  8. CERTICAN [Suspect]
     Active Substance: EVEROLIMUS
     Dosage: 0.5 DF, UNK
     Route: 048
     Dates: start: 2011
  9. FUROSEMIDE. [Concomitant]
     Active Substance: FUROSEMIDE
     Indication: PRODUCT USED FOR UNKNOWN INDICATION
     Dosage: UNK
     Route: 065
  10. XARELTO [Concomitant]
     Active Substance: RIVAROXABAN
     Indication: PRODUCT USED FOR UNKNOWN INDICATION
     Dosage: UNK
     Route: 065
  11. VALERIAN TINCTURE [Concomitant]
     Indication: PRODUCT USED FOR UNKNOWN INDICATION
     Dosage: UNK
     Route: 065
  12. MTX [Concomitant]
     Active Substance: METHOTREXATE SODIUM
     Indication: PRODUCT USED FOR UNKNOWN INDICATION
     Dosage: UNK
     Route: 065
  13. CORTISONE [Concomitant]
     Active Substance: CORTISONE\HYDROCORTISONE
     Indication: PRODUCT USED FOR UNKNOWN INDICATION
     Dosage: UNK
     Route: 065
  14. EUTHYROX [Concomitant]
     Active Substance: LEVOTHYROXINE SODIUM
     Indication: PRODUCT USED FOR UNKNOWN INDICATION
     Dosage: UNK
     Route: 065

REACTIONS (9)
  - Immunosuppressant drug level decreased [Recovered/Resolved]
  - Weight decreased [Recovered/Resolved]
  - Renal disorder [Recovered/Resolved]
  - Blood creatinine increased [Recovered/Resolved]
  - Gastroenteritis norovirus [Recovered/Resolved]
  - Back disorder [Recovered/Resolved]
  - Diarrhoea [Recovered/Resolved]
  - Drug level fluctuating [Recovered/Resolved]
  - Back pain [Recovered/Resolved]

NARRATIVE: CASE EVENT DATE: 2015
